FAERS Safety Report 10009250 (Version 2)
Quarter: 2014Q1

REPORT INFORMATION
  Report Type: Spontaneous
  Country: US (occurrence: US)
  Receive Date: 20140313
  Receipt Date: 20140313
  Transmission Date: 20141002
  Serious: No
  Sender: FDA-Public Use
  Company Number: US-GILEAD-2013-0075119

PATIENT
  Sex: Male

DRUGS (5)
  1. LETAIRIS [Suspect]
     Indication: PULMONARY ARTERIAL HYPERTENSION
     Dosage: 10 MG, QD
     Dates: start: 20110118
  2. LETAIRIS [Suspect]
  3. TYVASO [Concomitant]
  4. ADCIRCA [Concomitant]
  5. WARFARIN [Concomitant]

REACTIONS (3)
  - Bronchitis [Unknown]
  - Headache [Unknown]
  - Dyspnoea [Unknown]
